FAERS Safety Report 5755851-8 (Version None)
Quarter: 2008Q2

REPORT INFORMATION
  Report Type: 
  Country: None (occurrence: None)
  Receive Date: 20080528
  Receipt Date: 20080513
  Transmission Date: 20081010
  Serious: Yes (Other)
  Sender: FDA-Public Use
  Company Number: 2008S1008163

PATIENT
  Age: 35 Year
  Sex: Female

DRUGS (18)
  1. FENTANYL TRANSDERMAL SYSTEM [Suspect]
     Indication: BACK PAIN
     Dosage: 50 UG; EVERY HOUR; TRANSDERMAL
     Route: 062
     Dates: start: 20080428, end: 20080506
  2. FENTANYL TRANSDERMAL SYSTEM [Suspect]
     Indication: BACK PAIN
     Dosage: 50 UG; EVERY HOUR; TRANSDERMAL
     Route: 062
     Dates: start: 20080507
  3. GEODON [Concomitant]
  4. LOZOL [Concomitant]
  5. ARMOUR THYROID [Concomitant]
  6. LITHOBID [Concomitant]
  7. SYNTHROID [Concomitant]
  8. LAMICTAL [Concomitant]
  9. TOPAMAX [Concomitant]
  10. DETROL LA [Concomitant]
  11. LEXAPRO [Concomitant]
  12. LUNESTA [Concomitant]
  13. SEROQUEL [Concomitant]
  14. ESOMEPRAZOLE [Concomitant]
  15. POTASSIUM CHLORIDE [Concomitant]
  16. SOMA [Concomitant]
  17. TYLENOL W/ CODEINE [Concomitant]
  18. DARVOCET-N 100 [Concomitant]

REACTIONS (4)
  - CONSCIOUSNESS FLUCTUATING [None]
  - LETHARGY [None]
  - OVERDOSE [None]
  - PAIN [None]
